FAERS Safety Report 6581604-7 (Version None)
Quarter: 2010Q1

REPORT INFORMATION
  Report Type: 
  Country: None (occurrence: None)
  Receive Date: 20100215
  Receipt Date: 20100204
  Transmission Date: 20100710
  Serious: Yes (Hospitalization, Other)
  Sender: FDA-Public Use
  Company Number: GB-AMGEN-QUU379883

PATIENT
  Sex: Female

DRUGS (1)
  1. ARANESP [Suspect]
     Indication: ANAEMIA
     Route: 058
     Dates: start: 20091029

REACTIONS (5)
  - HOSPITALISATION [None]
  - HYPERSENSITIVITY [None]
  - PAIN [None]
  - PURPURA [None]
  - RASH GENERALISED [None]
